FAERS Safety Report 22138401 (Version 1)
Quarter: 2023Q1

REPORT INFORMATION
  Report Type: Spontaneous
  Country: FR (occurrence: FR)
  Receive Date: 20230326
  Receipt Date: 20230326
  Transmission Date: 20230417
  Serious: Yes (Hospitalization)
  Sender: FDA-Public Use
  Company Number: None

PATIENT
  Age: 4 Year
  Sex: Male
  Weight: 16 kg

DRUGS (2)
  1. VENLAFAXINE HYDROCHLORIDE [Suspect]
     Active Substance: VENLAFAXINE HYDROCHLORIDE
     Indication: Accidental exposure to product
     Dosage: 1 CP
     Route: 065
     Dates: start: 20211015, end: 20211015
  2. RISPERIDONE [Suspect]
     Active Substance: RISPERIDONE
     Indication: Accidental exposure to product
     Dosage: 1 CP
     Route: 065
     Dates: start: 20211015, end: 20211015

REACTIONS (2)
  - Accidental exposure to product [Recovered/Resolved]
  - Ataxia [Recovered/Resolved]

NARRATIVE: CASE EVENT DATE: 20211015
